FAERS Safety Report 9183560 (Version 2)
Quarter: 2014Q2

REPORT INFORMATION
  Report Type: Spontaneous
  Country: CN (occurrence: CN)
  Receive Date: 20130322
  Receipt Date: 20140512
  Transmission Date: 20141212
  Serious: Yes (Other)
  Sender: FDA-Public Use
  Company Number: PHHY2013CN027081

PATIENT
  Age: 48 Year
  Sex: Female

DRUGS (3)
  1. GLIVEC [Suspect]
     Indication: GASTROINTESTINAL STROMAL TUMOUR
     Dosage: 300 MG
     Route: 048
  2. GLIVEC [Suspect]
     Indication: GASTROINTESTINAL NEOPLASM
     Dosage: 400 MG, QD
     Route: 048
     Dates: start: 20130118, end: 20130308
  3. GLIVEC [Suspect]
     Dosage: 300 MG, QD
     Route: 048
     Dates: start: 20130308, end: 20130318

REACTIONS (24)
  - Skin ulcer [Recovering/Resolving]
  - Skin exfoliation [Recovering/Resolving]
  - Rash erythematous [Recovering/Resolving]
  - Hydrothorax [Not Recovered/Not Resolved]
  - Dyskinesia [Not Recovered/Not Resolved]
  - Mucosal ulceration [Not Recovered/Not Resolved]
  - Skin fissures [Not Recovered/Not Resolved]
  - Menstrual disorder [Recovering/Resolving]
  - Lacrimal disorder [Not Recovered/Not Resolved]
  - Haematuria [Not Recovered/Not Resolved]
  - Lacrimal haemorrhage [Recovering/Resolving]
  - Pleural effusion [Recovering/Resolving]
  - Dermatitis [Not Recovered/Not Resolved]
  - Dermatitis exfoliative [Not Recovered/Not Resolved]
  - Oedema peripheral [Not Recovered/Not Resolved]
  - Oedema [Not Recovered/Not Resolved]
  - Rash [Not Recovered/Not Resolved]
  - Abdominal pain [Not Recovered/Not Resolved]
  - Gait disturbance [Recovering/Resolving]
  - Blood urine [Recovering/Resolving]
  - Peripheral swelling [Recovering/Resolving]
  - Mouth ulceration [Recovering/Resolving]
  - Skin erosion [Recovering/Resolving]
  - Generalised oedema [Recovering/Resolving]
